FAERS Safety Report 5875649-X (Version None)
Quarter: 2008Q3

REPORT INFORMATION
  Report Type: 
  Country: None (occurrence: None)
  Receive Date: 20080909
  Receipt Date: 20080901
  Transmission Date: 20090109
  Serious: Yes (Other)
  Sender: FDA-Public Use
  Company Number: DE-AMGEN-UK300194

PATIENT
  Sex: Female
  Weight: 68 kg

DRUGS (1)
  1. NEULASTA [Suspect]
     Indication: CHEMOTHERAPY
     Route: 058
     Dates: start: 20080731, end: 20080731

REACTIONS (3)
  - LEUKOCYTOSIS [None]
  - PETECHIAE [None]
  - THROMBOCYTOPENIA [None]
